FAERS Safety Report 20553055 (Version 1)
Quarter: 2022Q1

REPORT INFORMATION
  Report Type: Report from Study
  Country: CO (occurrence: CO)
  Receive Date: 20220304
  Receipt Date: 20220304
  Transmission Date: 20220423
  Serious: Yes (Death, Hospitalization, Other)
  Sender: FDA-Public Use
  Company Number: CO-NOVARTISPH-NVSC2022CO038538

PATIENT
  Age: 66 Year
  Sex: Male

DRUGS (1)
  1. ELTROMBOPAG OLAMINE [Suspect]
     Active Substance: ELTROMBOPAG OLAMINE
     Indication: Aplastic anaemia
     Dosage: 150 MG, QD
     Route: 048

REACTIONS (3)
  - Cerebrovascular accident [Fatal]
  - Choking [Unknown]
  - Mouth haemorrhage [Unknown]

NARRATIVE: CASE EVENT DATE: 20220218
